FAERS Safety Report 6733085-8 (Version None)
Quarter: 2010Q2

REPORT INFORMATION
  Report Type: 
  Country: None (occurrence: None)
  Receive Date: 20100518
  Receipt Date: 20100504
  Transmission Date: 20101027
  Serious: Yes (Hospitalization)
  Sender: FDA-Public Use
  Company Number: 2010SP025432

PATIENT
  Age: 25 Year
  Sex: Female

DRUGS (1)
  1. DESLORATADINE [Suspect]
     Indication: DERMATITIS
     Dosage: 5 MG;QD;PO
     Route: 048

REACTIONS (1)
  - DERMATITIS ALLERGIC [None]
